FAERS Safety Report 19148181 (Version 3)
Quarter: 2021Q2

REPORT INFORMATION
  Report Type: Spontaneous
  Country: FR (occurrence: FR)
  Receive Date: 20210416
  Receipt Date: 20210603
  Transmission Date: 20210717
  Serious: Yes (Hospitalization, Other)
  Sender: FDA-Public Use
  Company Number: FR-PFIZER INC-2021379675

PATIENT
  Age: 90 Year
  Sex: Female
  Weight: 74 kg

DRUGS (7)
  1. FEMARA [Concomitant]
     Active Substance: LETROZOLE
     Dosage: 2.5 MILLIGRAM, QD
     Route: 048
  2. AMOXICILLINE [AMOXICILLIN] [Concomitant]
     Active Substance: AMOXICILLIN
     Indication: ENTEROCOCCAL INFECTION
     Dosage: 12 GRAM
     Route: 042
     Dates: start: 20210106, end: 20210126
  3. AMLODIPINE [Suspect]
     Active Substance: AMLODIPINE BESYLATE
     Indication: HYPERTENSION
     Dosage: 10 MG, 1X/DAY
     Route: 048
     Dates: start: 20210126, end: 20210205
  4. LANZOR [Suspect]
     Active Substance: LANSOPRAZOLE
     Dosage: 15 MG (1 DOSAGE FORM ), EVERY 1 H
     Route: 048
     Dates: start: 20210126, end: 20210205
  5. CEFTRIAXONE. [Concomitant]
     Active Substance: CEFTRIAXONE
     Indication: ENTEROCOCCAL INFECTION
     Dosage: 4 G, 1X/DAY
     Route: 042
     Dates: start: 20210106, end: 20210126
  6. CALCIPARINE [Suspect]
     Active Substance: HEPARIN CALCIUM
     Dosage: 2 DF, 1X/DAY (5 000 UI/0,2 ML)
     Route: 058
     Dates: start: 20210126, end: 20210205
  7. NICARDIPINE [NICARDIPINE HYDROCHLORIDE] [Concomitant]
     Active Substance: NICARDIPINE HYDROCHLORIDE
     Dosage: 20 MILLIGRAM, QD
     Route: 048
     Dates: end: 20210125

REACTIONS (6)
  - Alanine aminotransferase increased [Unknown]
  - Gamma-glutamyltransferase increased [Unknown]
  - Aspartate aminotransferase increased [Unknown]
  - Brain natriuretic peptide increased [Unknown]
  - C-reactive protein increased [Unknown]
  - Cholestasis [Recovered/Resolved]

NARRATIVE: CASE EVENT DATE: 20210130
